FAERS Safety Report 7297406-2 (Version None)
Quarter: 2011Q1

REPORT INFORMATION
  Report Type: 
  Country: None (occurrence: None)
  Receive Date: 20110216
  Receipt Date: 20110208
  Transmission Date: 20110831
  Serious: Yes (Hospitalization)
  Sender: FDA-Public Use
  Company Number: FR-ELI_LILLY_AND_COMPANY-FR201102001959

PATIENT
  Sex: Female

DRUGS (3)
  1. CHAMPIX [Concomitant]
     Indication: SMOKING CESSATION THERAPY
     Dosage: UNK, UNK
     Route: 048
     Dates: start: 20101122, end: 20101224
  2. PROZAC [Suspect]
     Route: 048
     Dates: start: 20101122, end: 20101225
  3. ALPRAZOLAM [Concomitant]
     Dosage: 0.25 MG, DAILY (1/D)
     Dates: start: 20101122

REACTIONS (1)
  - PSYCHOTIC DISORDER [None]
